FAERS Safety Report 6669099-6 (Version None)
Quarter: 2010Q2

REPORT INFORMATION
  Report Type: 
  Country: None (occurrence: None)
  Receive Date: 20100406
  Receipt Date: 20100324
  Transmission Date: 20101027
  Serious: Yes (Other)
  Sender: FDA-Public Use
  Company Number: US-JNJCH-2010007799

PATIENT

DRUGS (3)
  1. ASPIRIN [Suspect]
     Indication: DRUG EXPOSURE DURING PREGNANCY
     Route: 064
  2. HEPARIN [Suspect]
     Indication: DRUG EXPOSURE DURING PREGNANCY
     Dosage: TEXT:5,000-6,000 IU EVERY 12 HOURS
     Route: 064
  3. CALCIUM CARBONATE [Concomitant]
     Indication: DRUG EXPOSURE DURING PREGNANCY
     Dosage: TEXT:UNSPECIFIED
     Route: 064

REACTIONS (1)
  - KARYOTYPE ANALYSIS ABNORMAL [None]
